FAERS Safety Report 6407740-3 (Version None)
Quarter: 2009Q4

REPORT INFORMATION
  Report Type: 
  Country: None (occurrence: None)
  Receive Date: 20091020
  Receipt Date: 20091006
  Transmission Date: 20100525
  Serious: Yes (Other)
  Sender: FDA-Public Use
  Company Number: GB-MYLANLABS-2009S1017539

PATIENT
  Sex: Male

DRUGS (2)
  1. CLOMIPRAMINE [Suspect]
     Indication: DRUG USE FOR UNKNOWN INDICATION
  2. OPTIMAX [Suspect]
     Indication: DRUG USE FOR UNKNOWN INDICATION
     Dates: end: 20090901

REACTIONS (4)
  - CONFUSIONAL STATE [None]
  - DRUG WITHDRAWAL SYNDROME [None]
  - MOBILITY DECREASED [None]
  - SEROTONIN SYNDROME [None]
